FAERS Safety Report 19211540 (Version 1)
Quarter: 2021Q2

REPORT INFORMATION
  Report Type: Spontaneous
  Country: US (occurrence: US)
  Receive Date: 20210503
  Receipt Date: 20210503
  Transmission Date: 20210717
  Serious: No
  Sender: FDA-Public Use
  Company Number: None

PATIENT
  Age: 76 Year
  Sex: Male
  Weight: 77 kg

DRUGS (1)
  1. GABAPENTIN (GABAPENTIN 100MG CAP) [Suspect]
     Active Substance: GABAPENTIN
     Indication: PAIN
     Route: 048
     Dates: start: 20201117, end: 20210205

REACTIONS (1)
  - Insomnia [None]

NARRATIVE: CASE EVENT DATE: 20210205
